FAERS Safety Report 24613454 (Version 1)
Quarter: 2024Q4

REPORT INFORMATION
  Report Type: Spontaneous
  Country: JP (occurrence: JP)
  Receive Date: 20241113
  Receipt Date: 20241113
  Transmission Date: 20250115
  Serious: Yes (Other)
  Sender: ELI LILLY AND COMPANY
  Company Number: JP-ELI_LILLY_AND_COMPANY-JP202411002579

PATIENT
  Age: 94 Year
  Sex: Female

DRUGS (2)
  1. DULOXETINE HYDROCHLORIDE [Suspect]
     Active Substance: DULOXETINE HYDROCHLORIDE
     Indication: Pain
     Dosage: 20 MG, DAILY
  2. CELECOXIB [Suspect]
     Active Substance: CELECOXIB
     Indication: Pain

REACTIONS (6)
  - Pneumonia [Unknown]
  - Renal impairment [Recovering/Resolving]
  - Irritability [Unknown]
  - Hot flush [Unknown]
  - Aggression [Unknown]
  - Decreased appetite [Unknown]
